FAERS Safety Report 14895349 (Version 1)
Quarter: 2018Q2

REPORT INFORMATION
  Report Type: Spontaneous
  Country: CH (occurrence: CH)
  Receive Date: 20180515
  Receipt Date: 20180515
  Transmission Date: 20180711
  Serious: Yes (Other)
  Sender: FDA-Public Use
  Company Number: CH-ASTRAZENECA-2018SE63072

PATIENT
  Age: 52 Year
  Sex: Male

DRUGS (4)
  1. ENOXAPARIN [Concomitant]
     Active Substance: ENOXAPARIN
     Indication: ANTIPLATELET THERAPY
     Dosage: 1 MG/KG
  2. TICAGRELOR. [Suspect]
     Active Substance: TICAGRELOR
     Indication: ANTIPLATELET THERAPY
     Dosage: 180MG
     Route: 048
  3. ASPIRIN. [Concomitant]
     Active Substance: ASPIRIN
     Indication: ANTIPLATELET THERAPY
     Dosage: 250 MG
  4. EPTIFIBATIDE. [Concomitant]
     Active Substance: EPTIFIBATIDE
     Indication: PROCEDURAL PAIN
     Dosage: 10.7 ML X 2 BOLUSES DURING PCI FOLLOWED BY 19.2ML PER HOUR INFUSION WAS ADMINISTERED FOR A TOTAL ...

REACTIONS (2)
  - Hemianopia homonymous [Recovered/Resolved]
  - Cerebral infarction [Unknown]
